FAERS Safety Report 9953508 (Version 2)
Quarter: 2014Q1

REPORT INFORMATION
  Report Type: Report from Study
  Country: US (occurrence: US)
  Receive Date: 20140304
  Receipt Date: 20140311
  Transmission Date: 20141002
  Serious: Yes (Death)
  Sender: FDA-Public Use
  Company Number: US-SA-2014SA027678

PATIENT
  Sex: 0

DRUGS (2)
  1. CAPECITABINE [Suspect]
     Indication: PANCREATIC CARCINOMA METASTATIC
     Dosage: ON DAYS 1-14.
     Route: 048
  2. DOCETAXEL [Suspect]
     Indication: PANCREATIC CARCINOMA METASTATIC
     Dosage: ON DAYS 1 AND 8 OF EACH 21 DAY CYCLE.
     Route: 042

REACTIONS (1)
  - Pneumonia [Fatal]
